FAERS Safety Report 4605843-7 (Version None)
Quarter: 2005Q1

REPORT INFORMATION
  Report Type: 
  Country: None (occurrence: None)
  Receive Date: 20050116
  Receipt Date: 20040119
  Transmission Date: 20050727
  Serious: Yes (Hospitalization)
  Sender: FDA-Public Use
  Company Number: HQWYE476519JAN04

PATIENT
  Sex: Female

DRUGS (3)
  1. EFFEXOR [Suspect]
     Indication: ILL-DEFINED DISORDER
     Dosage: 75 MG 1X PER 1 DAY, ORAL
     Route: 048
  2. PAXIL [Suspect]
     Indication: ILL-DEFINED DISORDER
     Dosage: 25 MG 1X PER 1 DAY, ORAL; 50 MG 1X PER 1 DAY, ORAL
     Route: 048
     Dates: end: 20031101
  3. PAXIL [Suspect]
     Indication: ILL-DEFINED DISORDER
     Dosage: 25 MG 1X PER 1 DAY, ORAL; 50 MG 1X PER 1 DAY, ORAL
     Route: 048
     Dates: start: 20031101

REACTIONS (1)
  - SEROTONIN SYNDROME [None]
